FAERS Safety Report 9253873 (Version 4)
Quarter: 2013Q2

REPORT INFORMATION
  Report Type: Spontaneous
  Country: DE (occurrence: DE)
  Receive Date: 20130425
  Receipt Date: 20130516
  Transmission Date: 20140414
  Serious: Yes (Other)
  Sender: FDA-Public Use
  Company Number: DE-UCBSA-084104

PATIENT
  Age: 74 Year
  Sex: Female
  Weight: 82 kg

DRUGS (11)
  1. NEUPRO [Suspect]
     Indication: RESTLESS LEGS SYNDROME
     Dosage: 2 MG/24 HOUR
     Route: 062
     Dates: start: 201211
  2. FELOCOR [Concomitant]
  3. GLIBENHEXAL [Concomitant]
  4. METFORMIN [Concomitant]
  5. XELEVA [Concomitant]
  6. LORZAAR PLUS [Concomitant]
     Dosage: 50 MG / 12.5 MG
  7. ASS [Concomitant]
  8. TORASEMID [Concomitant]
  9. TREVILOR [Concomitant]
  10. MILGAMMA PROTEKT (B1) [Concomitant]
  11. ALPHAGAN AT [Concomitant]

REACTIONS (5)
  - Shoulder operation [Unknown]
  - Muscle spasms [Not Recovered/Not Resolved]
  - Restless legs syndrome [Recovered/Resolved]
  - Drug ineffective [Unknown]
  - Application site pain [Not Recovered/Not Resolved]
